FAERS Safety Report 22609991 (Version 2)
Quarter: 2023Q2

REPORT INFORMATION
  Report Type: Spontaneous
  Country: FR (occurrence: FR)
  Receive Date: 20230616
  Receipt Date: 20230623
  Transmission Date: 20230721
  Serious: Yes (Death)
  Sender: FDA-Public Use
  Company Number: FR-PFIZER INC-PV202300105709

PATIENT
  Age: 62 Year
  Sex: Male

DRUGS (5)
  1. PIPERACILLIN SODIUM\TAZOBACTAM SODIUM [Suspect]
     Active Substance: PIPERACILLIN SODIUM\TAZOBACTAM SODIUM
     Indication: Bacteraemia
     Dosage: UNK
  2. AMOXICILLIN\CLAVULANIC ACID [Suspect]
     Active Substance: AMOXICILLIN\CLAVULANIC ACID
     Indication: Bacteraemia
     Dosage: UNK
     Dates: start: 20201231, end: 20210107
  3. AMIKACIN [Suspect]
     Active Substance: AMIKACIN
     Indication: Bacteraemia
     Dosage: UNK
  4. SODIUM CHLORIDE [Concomitant]
     Active Substance: SODIUM CHLORIDE
     Indication: Bacteraemia
     Dosage: 500  ML OF SALINE SOLUTION 0.9 % ADMINISTERED IN TWENTY MINUTES
  5. IMIPENEM AND CILASTATIN [Concomitant]
     Active Substance: CILASTATIN SODIUM\IMIPENEM
     Indication: Bacteraemia
     Dosage: UNK

REACTIONS (2)
  - Off label use [Fatal]
  - Drug ineffective for unapproved indication [Fatal]
